FAERS Safety Report 5089223-9 (Version None)
Quarter: 2006Q3

REPORT INFORMATION
  Report Type: 
  Country: None (occurrence: None)
  Receive Date: 20060727
  Receipt Date: 20060531
  Transmission Date: 20061208
  Serious: Yes (Other)
  Sender: FDA-Public Use
  Company Number: 2006071389

PATIENT
  Age: 67 Year
  Sex: Female
  Weight: 109.7705 kg

DRUGS (8)
  1. LYRICA [Suspect]
     Indication: ARTHRITIS
     Dosage: 120 MG (40 MG, 3 IN 1 D), UNKNOWN
     Dates: start: 20060101
  2. ACTOS [Concomitant]
  3. AMARYL [Concomitant]
  4. GLUCOPHAGE [Concomitant]
  5. LIPITOR [Concomitant]
  6. SYNTHROID [Concomitant]
  7. NEXIUM [Concomitant]
  8. DIFLUNISAL [Concomitant]

REACTIONS (2)
  - MUSCLE SPASMS [None]
  - SPEECH DISORDER [None]
